FAERS Safety Report 9033881 (Version 1)
Quarter: 2013Q1

REPORT INFORMATION
  Report Type: Spontaneous
  Country: US (occurrence: US)
  Receive Date: 20130128
  Receipt Date: 20130128
  Transmission Date: 20140127
  Serious: Yes (Hospitalization)
  Sender: FDA-Public Use
  Company Number: US-AMGEN-USASP2012070341

PATIENT
  Age: 64 Year
  Sex: Female

DRUGS (1)
  1. ENBREL [Suspect]
     Indication: RHEUMATOID ARTHRITIS
     Dosage: 50 MG, QWK
     Dates: start: 20120731, end: 20120924

REACTIONS (7)
  - Intracardiac thrombus [Recovered/Resolved]
  - Cellulitis [Recovered/Resolved]
  - Dyspnoea [Unknown]
  - Chest pain [Unknown]
  - Local swelling [Recovered/Resolved]
  - Erythema [Recovered/Resolved]
  - Gait disturbance [Unknown]
